FAERS Safety Report 4421973-7 (Version None)
Quarter: 2004Q3

REPORT INFORMATION
  Report Type: 
  Country: None (occurrence: None)
  Receive Date: 20040709
  Receipt Date: 20030630
  Transmission Date: 20050211
  Serious: Yes (Other)
  Sender: FDA-Public Use
  Company Number: USA-2002-007322

PATIENT
  Age: 60 Year
  Sex: Female

DRUGS (1)
  1. ULTRAVIST 300 [Suspect]
     Indication: COMPUTERISED TOMOGRAM
     Dosage: ML, 1 DOSE, INTRAVENOUS
     Route: 042
     Dates: start: 20020912, end: 20020912

REACTIONS (8)
  - CHEST DISCOMFORT [None]
  - DIZZINESS [None]
  - FLUSHING [None]
  - HYPERHIDROSIS [None]
  - HYPOTENSION [None]
  - PARAESTHESIA [None]
  - SYNCOPE VASOVAGAL [None]
  - VISUAL DISTURBANCE [None]
